FAERS Safety Report 19217679 (Version 1)
Quarter: 2021Q2

REPORT INFORMATION
  Report Type: Other
  Country: DE (occurrence: DE)
  Receive Date: 20210505
  Receipt Date: 20210505
  Transmission Date: 20210717
  Serious: No
  Sender: FDA-Public Use
  Company Number: DE-ROCHE-2824451

PATIENT
  Age: 29 Year
  Sex: Female
  Weight: 70 kg

DRUGS (8)
  1. METHYLPREDNISOLONE. [Concomitant]
     Active Substance: METHYLPREDNISOLONE
     Route: 040
     Dates: start: 20190906, end: 20190908
  2. DIMETHYL FUMARATE [Concomitant]
     Active Substance: DIMETHYL FUMARATE
     Dates: start: 20140315, end: 20151215
  3. IBUPROFEN. [Concomitant]
     Active Substance: IBUPROFEN
  4. OCRELIZUMAB. [Suspect]
     Active Substance: OCRELIZUMAB
     Indication: RELAPSING MULTIPLE SCLEROSIS
     Route: 042
     Dates: start: 20200901, end: 20200915
  5. THYROXIN [Concomitant]
     Active Substance: LEVOTHYROXINE
     Indication: HYPOTHYROIDISM
     Route: 048
     Dates: start: 201911
  6. DIMETHYL FUMARATE [Concomitant]
     Active Substance: DIMETHYL FUMARATE
     Dates: start: 20160810, end: 20191028
  7. PARACETAMOL [Concomitant]
     Active Substance: ACETAMINOPHEN
     Indication: HEADACHE
     Dosage: DEFINITION OF THE INTERVAL: AS REQUIRED
     Route: 048
  8. NATALIZUMAB [Suspect]
     Active Substance: NATALIZUMAB
     Indication: RELAPSING MULTIPLE SCLEROSIS
     Route: 042
     Dates: start: 20191126, end: 20200710

REACTIONS (1)
  - COVID-19 [Recovering/Resolving]

NARRATIVE: CASE EVENT DATE: 202103
